FAERS Safety Report 8423385-8 (Version None)
Quarter: 2012Q2

REPORT INFORMATION
  Report Type: 
  Country: None (occurrence: None)
  Receive Date: 20120608
  Receipt Date: 20120530
  Transmission Date: 20120825
  Serious: Yes (Other)
  Sender: FDA-Public Use
  Company Number: CHPA2011US016119

PATIENT
  Age: 67 Year
  Sex: Female

DRUGS (6)
  1. EXCEDRIN EXTRA STRENGTH TABLETS [Suspect]
     Indication: HEADACHE
     Dosage: 2 DF, PER DAY IN DIVIDED DOSES
     Route: 048
  2. EXCEDRIN EXTRA STRENGTH TABLETS [Suspect]
     Dosage: 8 DF, PER DAY
     Route: 048
     Dates: start: 19670101
  3. EXCEDRIN EXTRA STRENGTH TABLETS [Suspect]
     Dosage: 4 DF, PER DAY
     Route: 048
  4. ENSURE [Concomitant]
     Dosage: UNK, PRN
  5. BOOST [Concomitant]
     Dosage: UNK, PRN
     Route: 048
  6. EXCEDRIN EXTRA STRENGTH TABLETS [Suspect]
     Dosage: 3 DF, PER DAY
     Route: 048

REACTIONS (19)
  - MEMORY IMPAIRMENT [None]
  - HEAD DISCOMFORT [None]
  - VOMITING [None]
  - INCORRECT DRUG ADMINISTRATION DURATION [None]
  - DRUG INEFFECTIVE [None]
  - IRRITABILITY [None]
  - DISEASE RECURRENCE [None]
  - WRONG TECHNIQUE IN DRUG USAGE PROCESS [None]
  - MENTAL IMPAIRMENT [None]
  - WITHDRAWAL SYNDROME [None]
  - THERAPEUTIC RESPONSE UNEXPECTED [None]
  - FEELING ABNORMAL [None]
  - DRUG DEPENDENCE [None]
  - NAUSEA [None]
  - UNDERDOSE [None]
  - ULCER [None]
  - CHOLELITHIASIS [None]
  - SENSATION OF HEAVINESS [None]
  - FRUSTRATION [None]
